FAERS Safety Report 7244224-7 (Version None)
Quarter: 2011Q1

REPORT INFORMATION
  Report Type: 
  Country: None (occurrence: None)
  Receive Date: 20110125
  Receipt Date: 20110121
  Transmission Date: 20110831
  Serious: Yes (Hospitalization)
  Sender: FDA-Public Use
  Company Number: US-PFIZER INC-2011006266

PATIENT
  Sex: Female
  Weight: 104.8 kg

DRUGS (8)
  1. SUNITINIB MALATE [Suspect]
     Indication: BREAST CANCER
     Dosage: 25 MG, 1X/DAY
     Route: 048
     Dates: start: 20101006, end: 20110104
  2. IRON SULFATETHIAMIN COMPOUND TAB [Concomitant]
     Dosage: 325 MG, 2X/DAY
     Route: 048
     Dates: start: 20060106
  3. PACLITAXEL [Suspect]
     Indication: BREAST CANCER
     Dosage: 60-80 MG/M2, WEEKLY, REDUCED TO 60MG (01DEC2010)
     Route: 042
     Dates: start: 20101006, end: 20101229
  4. GLIPIZIDE [Concomitant]
     Dosage: 10 MG, 2X/DAY
     Route: 048
     Dates: start: 20070601
  5. GABAPENTIN [Concomitant]
     Dosage: 400 MG, 3X/DAY
     Route: 048
     Dates: start: 20101026
  6. FUROSEMIDE [Concomitant]
     Dosage: 20 MG, 1X/DAY
     Route: 048
     Dates: start: 20070531
  7. LISINOPRIL [Concomitant]
     Dosage: 40 MG, 1X/DAY
     Route: 048
     Dates: start: 20070221
  8. ACTOS [Concomitant]
     Dosage: 45 MG, 1X/DAY
     Route: 048
     Dates: start: 20100115

REACTIONS (2)
  - CELLULITIS [None]
  - ABSCESS LIMB [None]
